FAERS Safety Report 11140312 (Version 1)
Quarter: 2015Q2

REPORT INFORMATION
  Report Type: Spontaneous
  Country: US (occurrence: US)
  Receive Date: 20150525
  Receipt Date: 20150525
  Transmission Date: 20150821
  Serious: No
  Sender: FDA-Public Use
  Company Number: US-JNJFOC-20140718591

PATIENT
  Sex: Female
  Weight: 90.72 kg

DRUGS (1)
  1. RISPERDAL CONSTA [Suspect]
     Active Substance: RISPERIDONE
     Indication: MENTAL DISORDER
     Route: 030

REACTIONS (3)
  - Product use issue [Unknown]
  - Procedural complication [Unknown]
  - Wrong technique in drug usage process [Unknown]
